FAERS Safety Report 9492130 (Version 2)
Quarter: 2013Q3

REPORT INFORMATION
  Report Type: Report from Study
  Country: BR (occurrence: BR)
  Receive Date: 20130830
  Receipt Date: 20130911
  Transmission Date: 20140515
  Serious: Yes (Hospitalization)
  Sender: FDA-Public Use
  Company Number: BR-ACTELION-A-CH2013-87884

PATIENT
  Age: 79 Year
  Sex: Female

DRUGS (10)
  1. TRACLEER [Suspect]
     Indication: PULMONARY ARTERIAL HYPERTENSION
     Dosage: 125 MG, BID
     Route: 048
  2. TRACLEER [Suspect]
     Dosage: 62.5 MG, BID
     Route: 048
     Dates: start: 20080927
  3. TRAMADOL [Concomitant]
  4. CODEINE [Concomitant]
  5. OMEPRAZOLE [Concomitant]
     Dosage: 40 MG, UNK
  6. DOMPERIDONE [Concomitant]
     Dosage: 10 MG, TID
  7. SERTRALINE [Concomitant]
     Dosage: 50 MG, UNK
  8. AMITRIPTYLINE [Concomitant]
     Dosage: 25 MG, QD
  9. LEVOTHYROXINE [Concomitant]
     Dosage: 50 MCG, QD
  10. CLONAZEPAM [Concomitant]
     Dosage: 2 MG, QD

REACTIONS (3)
  - Skin ulcer [Unknown]
  - Pain in extremity [Unknown]
  - Skin ulcer excision [Unknown]
